FAERS Safety Report 10339528 (Version 6)
Quarter: 2015Q3

REPORT INFORMATION
  Report Type: Report from Study
  Country: US (occurrence: US)
  Receive Date: 20140724
  Receipt Date: 20150707
  Transmission Date: 20151125
  Serious: Yes (Death, Life-Threatening, Hospitalization, Disabling, Other)
  Sender: FDA-Public Use
  Company Number: US-ALEXION-A201402865

PATIENT

DRUGS (3)
  1. SOLIRIS [Suspect]
     Active Substance: ECULIZUMAB
     Dosage: 900 MG, Q2W
     Route: 042
     Dates: start: 20110705
  2. SOLIRIS [Suspect]
     Active Substance: ECULIZUMAB
     Dosage: UNK
     Route: 042
     Dates: end: 20140808
  3. FOLIC ACID. [Concomitant]
     Active Substance: FOLIC ACID
     Indication: SUPPLEMENTATION THERAPY
     Dosage: 1000 ?G, QD
     Route: 065
     Dates: start: 20100101

REACTIONS (9)
  - Bone marrow failure [Unknown]
  - Mismatched donor bone marrow transplantation therapy [Not Recovered/Not Resolved]
  - Platelet transfusion [Unknown]
  - Lung infection [Fatal]
  - Aplastic anaemia [Unknown]
  - White blood cell count decreased [Not Recovered/Not Resolved]
  - Oral pain [Unknown]
  - Graft versus host disease [Fatal]
  - Drug ineffective [Unknown]

NARRATIVE: CASE EVENT DATE: 2014
